FAERS Safety Report 17402304 (Version 1)
Quarter: 2020Q1

REPORT INFORMATION
  Report Type: Spontaneous
  Country: US (occurrence: US)
  Receive Date: 20200210
  Receipt Date: 20200210
  Transmission Date: 20200409
  Serious: No
  Sender: FDA-Public Use
  Company Number: None

PATIENT
  Age: 32 Year
  Sex: Female
  Weight: 67.5 kg

DRUGS (1)
  1. METHYLPHENIDATE 54MG ER OSM TABLET [Suspect]
     Active Substance: METHYLPHENIDATE
     Indication: ATTENTION DEFICIT/HYPERACTIVITY DISORDER
     Dosage: ?          QUANTITY:1 TABLET(S);?
     Route: 048
     Dates: start: 20200207, end: 20200210

REACTIONS (6)
  - Dizziness [None]
  - Nausea [None]
  - Panic attack [None]
  - Vision blurred [None]
  - Memory impairment [None]
  - Product substitution issue [None]
